FAERS Safety Report 16406581 (Version 1)
Quarter: 2019Q2

REPORT INFORMATION
  Report Type: Report from Study
  Country: US (occurrence: US)
  Receive Date: 20190607
  Receipt Date: 20190607
  Transmission Date: 20190711
  Serious: Yes (Other)
  Sender: FDA-Public Use
  Company Number: US-TEVA-2019-US-1060342

PATIENT
  Age: 51 Year
  Sex: Female

DRUGS (16)
  1. SINGULAIR [Concomitant]
     Active Substance: MONTELUKAST SODIUM
  2. FISH OIL [Concomitant]
     Active Substance: FISH OIL
  3. COPAXONE [Suspect]
     Active Substance: GLATIRAMER ACETATE
     Indication: MULTIPLE SCLEROSIS
     Dosage: PRE-FILLED SYRINGE
     Route: 058
     Dates: start: 20150909
  4. DRIXORAL [Concomitant]
     Active Substance: DEXBROMPHENIRAMINE MALEATE\PSEUDOEPHEDRINE SULFATE
  5. GARLIC. [Concomitant]
     Active Substance: GARLIC
  6. ATIVAN [Concomitant]
     Active Substance: LORAZEPAM
  7. LOW DOSE ASPIRIN [Concomitant]
     Active Substance: ASPIRIN
  8. NASACORT [Concomitant]
     Active Substance: TRIAMCINOLONE ACETONIDE
  9. CELEXA [Concomitant]
     Active Substance: CITALOPRAM HYDROBROMIDE
  10. ZYRTEC [Concomitant]
     Active Substance: CETIRIZINE HYDROCHLORIDE
  11. CALTRATE [Concomitant]
     Active Substance: CALCIUM CARBONATE
  12. AFRIN [Concomitant]
     Active Substance: OXYMETAZOLINE
  13. SINUS TAB [Concomitant]
  14. MACRODANTIN [Concomitant]
     Active Substance: NITROFURANTOIN
  15. MULTIVITAMIN [Concomitant]
     Active Substance: VITAMINS
  16. FEXOFENADINE [Concomitant]
     Active Substance: FEXOFENADINE\FEXOFENADINE HYDROCHLORIDE

REACTIONS (1)
  - Kidney infection [Recovered/Resolved]

NARRATIVE: CASE EVENT DATE: 20190514
